FAERS Safety Report 15575277 (Version 1)
Quarter: 2018Q4

REPORT INFORMATION
  Report Type: Spontaneous
  Country: FR (occurrence: FR)
  Receive Date: 20181101
  Receipt Date: 20181101
  Transmission Date: 20190205
  Serious: Yes (Death, Other)
  Sender: FDA-Public Use
  Company Number: FR-JNJFOC-20181041990

PATIENT
  Age: 8 Decade
  Sex: Female

DRUGS (3)
  1. IBRUTINIB [Suspect]
     Active Substance: IBRUTINIB
     Indication: MANTLE CELL LYMPHOMA REFRACTORY
     Route: 048
  2. IBRUTINIB [Suspect]
     Active Substance: IBRUTINIB
     Indication: MANTLE CELL LYMPHOMA REFRACTORY
     Route: 048
     Dates: start: 201705, end: 201706
  3. IBRUTINIB [Suspect]
     Active Substance: IBRUTINIB
     Indication: MANTLE CELL LYMPHOMA REFRACTORY
     Route: 048
     Dates: start: 20150806, end: 201704

REACTIONS (5)
  - Myelodysplastic syndrome [Fatal]
  - Incorrect dose administered [Unknown]
  - Off label use [Unknown]
  - Lung infection [Fatal]
  - General physical health deterioration [Fatal]

NARRATIVE: CASE EVENT DATE: 20170622
